FAERS Safety Report 24742659 (Version 1)
Quarter: 2024Q4

REPORT INFORMATION
  Report Type: Spontaneous
  Country: US (occurrence: None)
  Receive Date: 20241214
  Receipt Date: 20241214
  Transmission Date: 20250115
  Serious: Yes (Life-Threatening, Disabling, Other)
  Sender: Public
  Company Number: None

PATIENT
  Age: 49 Year
  Sex: Female
  Weight: 77.85 kg

DRUGS (1)
  1. REGLAN [Suspect]
     Active Substance: METOCLOPRAMIDE HYDROCHLORIDE

REACTIONS (9)
  - Feeling abnormal [None]
  - Tremor [None]
  - Impaired gastric emptying [None]
  - Mood swings [None]
  - Anger [None]
  - Hypophagia [None]
  - Feeling jittery [None]
  - Product use issue [None]
  - Myocardial infarction [None]

NARRATIVE: CASE EVENT DATE: 20210801
